FAERS Safety Report 21972941 (Version 6)
Quarter: 2023Q1

REPORT INFORMATION
  Report Type: Spontaneous
  Country: US (occurrence: US)
  Receive Date: 20230209
  Receipt Date: 20230330
  Transmission Date: 20230418
  Serious: No
  Sender: FDA-Public Use
  Company Number: US-PFIZER INC-PV202300025386

PATIENT
  Age: 45 Year
  Sex: Female
  Weight: 49.9 kg

DRUGS (1)
  1. NICOTROL [Suspect]
     Active Substance: NICOTINE
     Indication: Smoking cessation therapy
     Dosage: 10 MG, DAILY [10MG PER CARTRIDGE, USING EVERY DAY]
     Dates: start: 202211

REACTIONS (4)
  - Oropharyngeal discomfort [Unknown]
  - Device use issue [Unknown]
  - Tooth disorder [Unknown]
  - Dysphonia [Unknown]
